FAERS Safety Report 8958222 (Version 1)
Quarter: 2012Q4

REPORT INFORMATION
  Report Type: 
  Country: US (occurrence: US)
  Receive Date: 20121211
  Receipt Date: 20121211
  Transmission Date: 20130627
  Serious: Yes (Hospitalization)
  Sender: FDA-Public Use
  Company Number: US-ASTRAZENECA-2012SE91526

PATIENT
  Sex: Female

DRUGS (1)
  1. BRILINTA [Suspect]
     Indication: PERCUTANEOUS CORONARY INTERVENTION
     Route: 048

REACTIONS (2)
  - Malaise [Recovered/Resolved]
  - Feeling abnormal [Recovered/Resolved]
